FAERS Safety Report 7225139-7 (Version None)
Quarter: 2011Q1

REPORT INFORMATION
  Report Type: 
  Country: None (occurrence: None)
  Receive Date: 20110113
  Receipt Date: 20101230
  Transmission Date: 20110831
  Serious: Yes (Hospitalization)
  Sender: FDA-Public Use
  Company Number: A0899974A

PATIENT
  Age: 72 Year
  Sex: Female
  Weight: 137 kg

DRUGS (10)
  1. ERLOTINIB [Suspect]
     Indication: NON-SMALL CELL LUNG CANCER
     Dosage: 150MG PER DAY
     Route: 048
     Dates: start: 20101203
  2. ATIVAN [Concomitant]
     Indication: NAUSEA
     Dosage: 1MG AS REQUIRED
     Route: 048
     Dates: start: 20100707
  3. PROMETHAZINE [Concomitant]
     Indication: NAUSEA
     Dosage: 25MG AS REQUIRED
     Dates: start: 20100521
  4. METOPROLOL TARTRATE [Concomitant]
     Indication: HYPERTENSION
     Dosage: 50MG TWICE PER DAY
     Route: 048
     Dates: start: 20101005
  5. ZOMETA [Concomitant]
     Indication: METASTASES TO BONE
     Dosage: 4MG MONTHLY
     Dates: start: 20101203
  6. ALLOPURINOL [Concomitant]
     Indication: GOUT
     Dosage: 300MG PER DAY
     Route: 048
     Dates: start: 20101005
  7. PAROXETINE HCL [Concomitant]
     Indication: DEPRESSION
     Dosage: 30MG PER DAY
     Route: 048
     Dates: start: 20101005
  8. PREVACID [Concomitant]
     Indication: ILL-DEFINED DISORDER
     Dosage: 30MG TWICE PER DAY
     Route: 048
  9. ACETAMINOPHEN AND HYDROCODONE BITARTRATE [Concomitant]
     Indication: PAIN
     Route: 048
     Dates: start: 20100707
  10. PAZOPANIB [Suspect]
     Indication: NON-SMALL CELL LUNG CANCER
     Dosage: 600MG PER DAY
     Route: 048
     Dates: start: 20101203

REACTIONS (3)
  - RENAL FAILURE ACUTE [None]
  - ILL-DEFINED DISORDER [None]
  - DEHYDRATION [None]
